FAERS Safety Report 5904178-X (Version None)
Quarter: 2008Q4

REPORT INFORMATION
  Report Type: 
  Country: None (occurrence: None)
  Receive Date: 20081001
  Receipt Date: 20080923
  Transmission Date: 20090506
  Serious: Yes (Hospitalization, Other)
  Sender: FDA-Public Use
  Company Number: GB-TEVA-177817ISR

PATIENT
  Age: 19 Year
  Sex: Female

DRUGS (1)
  1. GABAPENTIN [Suspect]
     Route: 048
     Dates: start: 20080519, end: 20080613

REACTIONS (6)
  - AMNESIA [None]
  - DIPLOPIA [None]
  - DYSARTHRIA [None]
  - FALL [None]
  - HEAD INJURY [None]
  - NERVOUS SYSTEM DISORDER [None]
